FAERS Safety Report 21868795 (Version 2)
Quarter: 2023Q1

REPORT INFORMATION
  Report Type: Spontaneous
  Country: JP (occurrence: JP)
  Receive Date: 20230117
  Receipt Date: 20230206
  Transmission Date: 20230418
  Serious: Yes (Hospitalization, Disabling, Other)
  Sender: FDA-Public Use
  Company Number: JP-002147023-NVSJ2023JP000658

PATIENT
  Age: 56 Year
  Sex: Male
  Weight: 81.9 kg

DRUGS (4)
  1. ENTRESTO [Suspect]
     Active Substance: SACUBITRIL\VALSARTAN
     Indication: Cardiac failure
     Dosage: 100 MG
     Route: 048
     Dates: start: 20220910
  2. FUROSEMIDE [Suspect]
     Active Substance: FUROSEMIDE
     Indication: Product used for unknown indication
     Dosage: 40 MG
     Route: 041
     Dates: start: 20220909, end: 20220914
  3. SPIRONOLACTONE [Concomitant]
     Active Substance: SPIRONOLACTONE
     Indication: Product used for unknown indication
     Dosage: 25 MG
     Route: 048
     Dates: start: 20220909
  4. DAPAGLIFLOZIN [Concomitant]
     Active Substance: DAPAGLIFLOZIN
     Indication: Product used for unknown indication
     Dosage: 10 MG
     Route: 048
     Dates: start: 20220909

REACTIONS (6)
  - Embolic stroke [Recovered/Resolved with Sequelae]
  - Aphasia [Unknown]
  - Cerebral vascular occlusion [Unknown]
  - Cerebrovascular stenosis [Unknown]
  - Cardiac ventricular thrombosis [Recovering/Resolving]
  - Polyuria [Recovered/Resolved]

NARRATIVE: CASE EVENT DATE: 20220910
